FAERS Safety Report 11510139 (Version 1)
Quarter: 2015Q3

REPORT INFORMATION
  Report Type: Spontaneous
  Country: US (occurrence: US)
  Receive Date: 20150915
  Receipt Date: 20150915
  Transmission Date: 20151125
  Serious: No
  Sender: FDA-Public Use
  Company Number: US-JNJFOC-20150707454

PATIENT
  Age: 86 Year
  Sex: Male
  Weight: 80.74 kg

DRUGS (2)
  1. TYLENOL REGULAR STRENGTH [Suspect]
     Active Substance: ACETAMINOPHEN
     Indication: ARTHRALGIA
     Dosage: DOSAGE: 1-2 TABLETS
     Route: 048
  2. TYLENOL REGULAR STRENGTH [Suspect]
     Active Substance: ACETAMINOPHEN
     Indication: BACK PAIN
     Dosage: DOSAGE: 1-2 TABLETS
     Route: 048

REACTIONS (2)
  - Therapeutic response decreased [Unknown]
  - Incorrect dose administered [Unknown]
